FAERS Safety Report 6924361-4 (Version None)
Quarter: 2010Q3

REPORT INFORMATION
  Report Type: 
  Country: None (occurrence: None)
  Receive Date: 20100811
  Receipt Date: 20100811
  Transmission Date: 20110219
  Serious: Yes (Other)
  Sender: FDA-Public Use
  Company Number: None

PATIENT
  Sex: Female
  Weight: 60.782 kg

DRUGS (4)
  1. AUGMENTIN '125' [Suspect]
     Dosage: 875 MG PO BID X 14 DAYS
     Route: 048
     Dates: start: 20080131, end: 20080201
  2. ALBUTEROL SULATE [Concomitant]
  3. MUCINEX [Concomitant]
  4. BIRTH CONTROL [Concomitant]

REACTIONS (1)
  - RASH PRURITIC [None]
